FAERS Safety Report 15826446 (Version 2)
Quarter: 2019Q1

REPORT INFORMATION
  Report Type: Spontaneous
  Country: US (occurrence: US)
  Receive Date: 20190115
  Receipt Date: 20190115
  Transmission Date: 20190417
  Serious: Yes (Other)
  Sender: FDA-Public Use
  Company Number: US-SA-2019SA010140

PATIENT

DRUGS (2)
  1. LEMTRADA [Suspect]
     Active Substance: ALEMTUZUMAB
     Dosage: 12 MG
     Route: 041
     Dates: start: 201611
  2. LEMTRADA [Suspect]
     Active Substance: ALEMTUZUMAB
     Dosage: 12 MG
     Route: 041
     Dates: start: 201712

REACTIONS (2)
  - Immune thrombocytopenic purpura [Unknown]
  - Platelet count decreased [Unknown]

NARRATIVE: CASE EVENT DATE: 201901
